FAERS Safety Report 9336918 (Version 1)
Quarter: 2013Q2

REPORT INFORMATION
  Report Type: Spontaneous
  Country: FR (occurrence: FR)
  Receive Date: 20130607
  Receipt Date: 20130607
  Transmission Date: 20140414
  Serious: Yes (Other)
  Sender: FDA-Public Use
  Company Number: FR-BRISTOL-MYERS SQUIBB COMPANY-17216516

PATIENT
  Age: 66 Year
  Sex: Male

DRUGS (3)
  1. ELIQUIS [Suspect]
     Indication: VENOUS THROMBOSIS
     Route: 048
     Dates: start: 20121205, end: 20121206
  2. LYRICA [Concomitant]
     Indication: NEURALGIA
     Dates: start: 20120526
  3. CODOLIPRANE [Concomitant]
     Indication: PAIN
     Route: 048
     Dates: start: 20121205

REACTIONS (5)
  - Dysuria [Recovered/Resolved]
  - Joint swelling [Recovered/Resolved]
  - Pruritus [Recovered/Resolved]
  - Erythema [Recovered/Resolved]
  - Dizziness [Recovered/Resolved]
